FAERS Safety Report 23910667 (Version 1)
Quarter: 2024Q2

REPORT INFORMATION
  Report Type: Spontaneous
  Country: US (occurrence: US)
  Receive Date: 20240528
  Receipt Date: 20240528
  Transmission Date: 20240716
  Serious: No
  Sender: FDA-Public Use
  Company Number: US-AVADEL CNS PHARMACEUTICALS, LLC-2024AVA00172

PATIENT
  Age: 37 Year
  Sex: Male

DRUGS (7)
  1. LUMRYZ [Suspect]
     Active Substance: SODIUM OXYBATE
     Indication: Narcolepsy
     Dosage: 4.5 G, NIGHTLY
     Route: 048
     Dates: start: 20240202, end: 20240204
  2. LUMRYZ [Suspect]
     Active Substance: SODIUM OXYBATE
     Dosage: 4.5 G, NIGHTLY
     Route: 048
     Dates: start: 202402
  3. WAKIX [Concomitant]
     Active Substance: PITOLISANT HYDROCHLORIDE
     Dosage: UNK
  4. PAROXETINE [Concomitant]
     Active Substance: PAROXETINE
     Dosage: UNK
  5. TESTIM [Concomitant]
     Active Substance: TESTOSTERONE
     Dosage: UNK
  6. LUNESTA [Concomitant]
     Active Substance: ESZOPICLONE
     Dosage: UNK
  7. ADDERALL [Concomitant]
     Active Substance: AMPHETAMINE ASPARTATE\AMPHETAMINE SULFATE\DEXTROAMPHETAMINE SACCHARATE\DEXTROAMPHETAMINE SULFATE
     Dosage: UNK

REACTIONS (3)
  - COVID-19 [Not Recovered/Not Resolved]
  - Insomnia [Not Recovered/Not Resolved]
  - Product administration interrupted [Not Recovered/Not Resolved]

NARRATIVE: CASE EVENT DATE: 20240201
